FAERS Safety Report 8311472-4 (Version None)
Quarter: 2012Q2

REPORT INFORMATION
  Report Type: 
  Country: None (occurrence: None)
  Receive Date: 20120425
  Receipt Date: 20120418
  Transmission Date: 20120825
  Serious: Yes (Hospitalization)
  Sender: FDA-Public Use
  Company Number: PHHO2012US006029

PATIENT
  Sex: Female
  Weight: 71.5 kg

DRUGS (2)
  1. TASIGNA [Suspect]
     Dosage: 400 MG, BID
     Route: 048
     Dates: start: 20111205, end: 20120305
  2. TASIGNA [Suspect]
     Indication: SYSTEMIC SCLEROSIS
     Dosage: UNK MG, BID
     Dates: start: 20111031

REACTIONS (1)
  - ARTERIOSCLEROSIS CORONARY ARTERY [None]
